FAERS Safety Report 7546896-6 (Version None)
Quarter: 2011Q2

REPORT INFORMATION
  Report Type: 
  Country: None (occurrence: None)
  Receive Date: 20110614
  Receipt Date: 20110601
  Transmission Date: 20111010
  Serious: Yes (Hospitalization, Other)
  Sender: FDA-Public Use
  Company Number: US-TYCO HEALTHCARE/MALLINCKRODT-T201101190

PATIENT
  Age: 83 Year
  Sex: Female

DRUGS (4)
  1. OXYCODONE HCL EXTENDED-RELEASE [Suspect]
     Dosage: 160 MG, QD
  2. OXYCODONE HCL EXTENDED-RELEASE [Suspect]
     Dosage: 160 MG, QD
  3. HYDROCODONE BITARTRATE [Suspect]
     Dosage: 60 MG, QD
  4. OXYCODONE HCL EXTENDED-RELEASE [Suspect]
     Dosage: 40 MG, QD

REACTIONS (7)
  - CHRONIC OBSTRUCTIVE PULMONARY DISEASE [None]
  - CONFUSIONAL STATE [None]
  - CORONARY ARTERY DISEASE [None]
  - CARDIOMYOPATHY [None]
  - HYPOTENSION [None]
  - TORSADE DE POINTES [None]
  - AGITATION [None]
